FAERS Safety Report 23313065 (Version 1)
Quarter: 2023Q4

REPORT INFORMATION
  Report Type: Spontaneous
  Country: US (occurrence: US)
  Receive Date: 20231219
  Receipt Date: 20231219
  Transmission Date: 20240109
  Serious: No
  Sender: FDA-Public Use
  Company Number: US-PFIZER INC-PV202300200809

PATIENT
  Age: 68 Year
  Sex: Female
  Weight: 65.76 kg

DRUGS (1)
  1. IBRANCE [Suspect]
     Active Substance: PALBOCICLIB
     Indication: Invasive lobular breast carcinoma
     Dosage: DAILY FOR 21 DAYS AND THEN OFF 7 DAYS
     Route: 048

REACTIONS (1)
  - Weight decreased [Unknown]
